FAERS Safety Report 24264747 (Version 1)
Quarter: 2024Q3

REPORT INFORMATION
  Report Type: Report from Study
  Country: AU (occurrence: AU)
  Receive Date: 20240829
  Receipt Date: 20240829
  Transmission Date: 20241016
  Serious: Yes (Hospitalization)
  Sender: EISAI
  Company Number: AU-Eisai-EC-2024-172866

PATIENT
  Age: 74 Year
  Sex: Male

DRUGS (4)
  1. LENVIMA [Suspect]
     Active Substance: LENVATINIB
     Indication: Neuroendocrine tumour
     Route: 048
     Dates: start: 202406, end: 202406
  2. LENVIMA [Suspect]
     Active Substance: LENVATINIB
     Dosage: STOPPED://2024
     Route: 048
     Dates: start: 202406
  3. LENVIMA [Suspect]
     Active Substance: LENVATINIB
     Dosage: 5 DAYS ON, 2 DAYS OFF.
     Route: 048
     Dates: start: 2024
  4. PEMBROLIZUMAB [Concomitant]
     Active Substance: PEMBROLIZUMAB
     Indication: Neuroendocrine tumour
     Dosage: DOSE   UNKNOWN
     Route: 042
     Dates: start: 202406

REACTIONS (1)
  - Hyponatraemia [Unknown]

NARRATIVE: CASE EVENT DATE: 20240101
